FAERS Safety Report 16373191 (Version 2)
Quarter: 2019Q2

REPORT INFORMATION
  Report Type: Spontaneous
  Country: BR (occurrence: BR)
  Receive Date: 20190530
  Receipt Date: 20190605
  Transmission Date: 20190711
  Serious: Yes (Death, Life-Threatening, Hospitalization, Other)
  Sender: FDA-Public Use
  Company Number: BR-PFIZER INC-2019230456

PATIENT
  Age: 61 Year
  Sex: Male

DRUGS (14)
  1. DOXORUBICIN HCL [Suspect]
     Active Substance: DOXORUBICIN HYDROCHLORIDE
     Indication: SPINAL CORD COMPRESSION
  2. BORTEZOMIB. [Suspect]
     Active Substance: BORTEZOMIB
     Indication: PLASMA CELL MYELOMA
     Dosage: UNK, CYCLIC (FIRST VTD-PACE CYCLE)
  3. BORTEZOMIB. [Suspect]
     Active Substance: BORTEZOMIB
     Indication: SPINAL CORD COMPRESSION
  4. DEXAMETHASONE. [Suspect]
     Active Substance: DEXAMETHASONE
     Indication: SPINAL CORD COMPRESSION
  5. THALIDOMIDE [Suspect]
     Active Substance: THALIDOMIDE
     Indication: PLASMA CELL MYELOMA
  6. ETOPOSIDE. [Suspect]
     Active Substance: ETOPOSIDE
     Indication: PLASMA CELL MYELOMA
     Dosage: UNK, CYCLIC (FIRST VTD-PACE CYCLE)
  7. CISPLATIN. [Suspect]
     Active Substance: CISPLATIN
     Indication: SPINAL CORD COMPRESSION
  8. THALIDOMIDE [Suspect]
     Active Substance: THALIDOMIDE
     Indication: SPINAL CORD COMPRESSION
     Dosage: UNK, CYCLIC (FIRST VTD-PACE CYCLE)
  9. CISPLATIN. [Suspect]
     Active Substance: CISPLATIN
     Indication: PLASMA CELL MYELOMA
     Dosage: UNK, CYCLIC (FIRST VTD-PACE CYCLE)
  10. DEXAMETHASONE. [Suspect]
     Active Substance: DEXAMETHASONE
     Indication: PLASMA CELL MYELOMA
     Dosage: UNK, CYCLIC (FIRST VTD-PACE CYCLE)
  11. DOXORUBICIN HCL [Suspect]
     Active Substance: DOXORUBICIN HYDROCHLORIDE
     Indication: PLASMA CELL MYELOMA
     Dosage: UNK, CYCLIC (FIRST VTD-PACE CYCLE)
  12. ETOPOSIDE. [Suspect]
     Active Substance: ETOPOSIDE
     Indication: SPINAL CORD COMPRESSION
  13. CYCLOPHOSPHAMIDE. [Suspect]
     Active Substance: CYCLOPHOSPHAMIDE
     Indication: SPINAL CORD COMPRESSION
     Dosage: UNK, CYCLIC (FIRST VTD-PACE CYCLE)
  14. CYCLOPHOSPHAMIDE. [Suspect]
     Active Substance: CYCLOPHOSPHAMIDE
     Indication: PLASMA CELL MYELOMA

REACTIONS (3)
  - Multiple organ dysfunction syndrome [Fatal]
  - Neutropenic sepsis [Fatal]
  - Septic shock [Fatal]
